FAERS Safety Report 20102585 (Version 13)
Quarter: 2024Q4

REPORT INFORMATION
  Report Type: Spontaneous
  Country: US (occurrence: US)
  Receive Date: 20211123
  Receipt Date: 20241218
  Transmission Date: 20250114
  Serious: Yes (Other)
  Sender: PFIZER
  Company Number: US-PFIZER INC-2021866416

PATIENT
  Age: 74 Year
  Sex: Female

DRUGS (4)
  1. IBRANCE [Suspect]
     Active Substance: PALBOCICLIB
     Indication: Breast cancer female
     Dosage: 100 MG, CYCLIC (TAKE 21 OF THEM AND THEN 7 DAYS OFF))
     Dates: start: 201904
  2. IBRANCE [Suspect]
     Active Substance: PALBOCICLIB
     Dosage: TAKE ON DAYS 1 TO 21 FOLLOWED BY 7 DAYS OFF. REPEAT EVERY 28 DAYS
     Route: 048
  3. ELIQUIS [Concomitant]
     Active Substance: APIXABAN
     Dosage: 5 MG, 2X/DAY (ONE TABLET TWICE DAILY)
  4. ESTROGENS [Concomitant]
     Active Substance: ESTROGENS
     Indication: Immune system disorder
     Dosage: TAKES HER ESTRAGEN EVERY MONTH

REACTIONS (8)
  - Pneumonia [Unknown]
  - Cataract [Unknown]
  - White blood cell count decreased [Unknown]
  - Macrocytosis [Unknown]
  - Full blood count decreased [Unknown]
  - COVID-19 [Unknown]
  - Respiratory syncytial virus infection [Unknown]
  - Illness [Unknown]

NARRATIVE: CASE EVENT DATE: 20220101
